FAERS Safety Report 16610460 (Version 25)
Quarter: 2025Q1

REPORT INFORMATION
  Report Type: Spontaneous
  Country: US (occurrence: US)
  Receive Date: 20190722
  Receipt Date: 20250303
  Transmission Date: 20250408
  Serious: Yes (Hospitalization, Other)
  Sender: PFIZER
  Company Number: US-PFIZER INC-2019297199

PATIENT
  Age: 73 Year
  Sex: Female
  Weight: 62.585 kg

DRUGS (20)
  1. PREMARIN [Suspect]
     Active Substance: ESTROGENS, CONJUGATED
     Indication: Hormone replacement therapy
     Dosage: 1.25 MG, 1X/DAY
     Route: 048
     Dates: start: 1982
  2. PREMARIN [Suspect]
     Active Substance: ESTROGENS, CONJUGATED
     Indication: Weight increased
     Dosage: 1.25 MG, 1X/DAY (IN THE MORNING)
     Route: 048
     Dates: start: 1985
  3. PREMARIN [Suspect]
     Active Substance: ESTROGENS, CONJUGATED
     Indication: Autonomic nervous system imbalance
     Dosage: 10 MG, 1X/DAY
  4. PREMARIN [Suspect]
     Active Substance: ESTROGENS, CONJUGATED
     Indication: Hysterectomy
  5. PREMARIN [Suspect]
     Active Substance: ESTROGENS, CONJUGATED
     Dosage: 1.25 MG, 1X/DAY (1.25MG ONCE A DAY DRINK WITH WATER IN THE MORNING)
     Dates: start: 2019
  6. PREMARIN [Suspect]
     Active Substance: ESTROGENS, CONJUGATED
     Dosage: 1.25 MG, 1X/DAY 1.25MG; 1 TABLET ONCE A DAY
  7. ALEVE [Concomitant]
     Active Substance: NAPROXEN SODIUM
     Dosage: UNK, 2X/DAY (3 YRS 1 AM AND 1 M)
  8. AMLODIPINE BESYLATE [Concomitant]
     Active Substance: AMLODIPINE BESYLATE
     Indication: Blood pressure abnormal
     Dosage: 5 MG, 1X/DAY
     Route: 048
     Dates: start: 2015
  9. AMLODIPINE BESYLATE [Concomitant]
     Active Substance: AMLODIPINE BESYLATE
     Dosage: UNK, 1X/DAY
  10. GARLIC [Concomitant]
     Active Substance: GARLIC
     Indication: Vitamin supplementation
     Dosage: UNK, WEEKLY
     Dates: start: 2017
  11. LEVOTHYROXINE [Concomitant]
     Active Substance: LEVOTHYROXINE
     Indication: Thyroid disorder
     Dosage: 0.088 MG, 1X/DAY
     Dates: start: 1985
  12. LEVOTHYROXINE [Concomitant]
     Active Substance: LEVOTHYROXINE
     Dosage: 0.33 MG, 1X/DAY(TAKES ALL MEDS IN MORNING, WITH BREAKFAST   )
  13. LOSARTAN AND HYDROCHLOROTHIAZIDE [Concomitant]
     Active Substance: HYDROCHLOROTHIAZIDE\LOSARTAN POTASSIUM
  14. LOSARTAN AND HYDROCHLOROTHIAZIDE [Concomitant]
     Active Substance: HYDROCHLOROTHIAZIDE\LOSARTAN POTASSIUM
     Dosage: UNK, 1X/DAY
  15. DOCONEXENT\ICOSAPENT\TOCOPHEROL [Concomitant]
     Active Substance: DOCONEXENT\ICOSAPENT\TOCOPHEROL
     Indication: Vitamin supplementation
     Dosage: UNK, WEEKLY (TAKEN ABOUT ONCE WEEKLY IF SHE HAS NOT EATEN FISH THAT WEEK)
     Dates: start: 2017
  16. SULFAMETHOXAZOLE\TRIMETHOPRIM [Concomitant]
     Active Substance: SULFAMETHOXAZOLE\TRIMETHOPRIM
     Indication: Blood pressure abnormal
     Dosage: 160 MG, 1X/DAY
     Route: 048
     Dates: start: 2015
  17. VITAMIN B12 [Concomitant]
     Active Substance: CYANOCOBALAMIN
     Indication: Vitamin supplementation
     Dosage: UNK, WEEKLY
     Dates: start: 2017
  18. VITAMIN B12 [Concomitant]
     Active Substance: CYANOCOBALAMIN
     Dosage: UNK, MONTHLY
  19. ZINC [Concomitant]
     Active Substance: ZINC
     Indication: Vitamin supplementation
     Dates: start: 2017
  20. LOSARTAN [Concomitant]
     Active Substance: LOSARTAN
     Dosage: 100 MG, 1X/DAY

REACTIONS (22)
  - Joint destruction [Recovering/Resolving]
  - Urinary tract infection [Not Recovered/Not Resolved]
  - Near death experience [Unknown]
  - Fall [Not Recovered/Not Resolved]
  - Dyspnoea [Unknown]
  - Interstitial lung disease [Not Recovered/Not Resolved]
  - Neck pain [Not Recovered/Not Resolved]
  - Back pain [Not Recovered/Not Resolved]
  - Ligament rupture [Unknown]
  - Feeling abnormal [Unknown]
  - Weight decreased [Unknown]
  - Fatigue [Unknown]
  - Memory impairment [Unknown]
  - Rotator cuff syndrome [Unknown]
  - Concussion [Unknown]
  - Osteoarthritis [Unknown]
  - Infection [Unknown]
  - Seasonal allergy [Unknown]
  - Malaise [Unknown]
  - Fatigue [Unknown]
  - Off label use [Unknown]
  - Product dispensing error [Unknown]

NARRATIVE: CASE EVENT DATE: 19820101
